FAERS Safety Report 22374532 (Version 2)
Quarter: 2023Q2

REPORT INFORMATION
  Report Type: Spontaneous
  Country: IN (occurrence: IN)
  Receive Date: 20230526
  Receipt Date: 20230621
  Transmission Date: 20230721
  Serious: Yes (Death, Hospitalization)
  Sender: FDA-Public Use
  Company Number: IN-GE HEALTHCARE-2023CSU003999

PATIENT
  Age: 36 Year
  Sex: Male
  Weight: 70 kg

DRUGS (3)
  1. OMNIPAQUE [Suspect]
     Active Substance: IOHEXOL
     Indication: Computerised tomogram abdomen
     Dosage: 80 ML, SINGLE
     Route: 042
     Dates: start: 20230518, end: 20230518
  2. OMNIPAQUE [Suspect]
     Active Substance: IOHEXOL
     Indication: Liver disorder
  3. OMNIPAQUE [Suspect]
     Active Substance: IOHEXOL
     Indication: Fatty liver alcoholic

REACTIONS (2)
  - Acute kidney injury [Fatal]
  - Oxygen saturation decreased [Not Recovered/Not Resolved]

NARRATIVE: CASE EVENT DATE: 20230518
